FAERS Safety Report 9415871 (Version 1)
Quarter: 2013Q3

REPORT INFORMATION
  Report Type: Spontaneous
  Country: US (occurrence: US)
  Receive Date: 20130724
  Receipt Date: 20130724
  Transmission Date: 20140515
  Serious: Yes (Hospitalization)
  Sender: FDA-Public Use
  Company Number: US-BIOGENIDEC-2013BI066609

PATIENT
  Sex: Female

DRUGS (4)
  1. TYSABRI [Suspect]
     Indication: MULTIPLE SCLEROSIS
     Route: 030
     Dates: start: 20120430, end: 20130129
  2. KLONOPIN [Concomitant]
  3. AMBIEN [Concomitant]
  4. MOTRIN [Concomitant]

REACTIONS (1)
  - Haemorrhoids [Not Recovered/Not Resolved]
